FAERS Safety Report 6786937-7 (Version None)
Quarter: 2010Q2

REPORT INFORMATION
  Report Type: 
  Country: None (occurrence: None)
  Receive Date: 20100623
  Receipt Date: 20100618
  Transmission Date: 20101027
  Serious: Yes (Hospitalization)
  Sender: FDA-Public Use
  Company Number: US-ELI_LILLY_AND_COMPANY-US201006005260

PATIENT
  Sex: Male

DRUGS (2)
  1. HUMALOG MIX 75/25 [Suspect]
     Indication: TYPE 1 DIABETES MELLITUS
     Dosage: 7 U, UNKNOWN
  2. HUMALOG MIX 75/25 [Suspect]
     Dosage: 5 U, OTHER
     Dates: start: 20100618, end: 20100618

REACTIONS (6)
  - BLOOD GLUCOSE INCREASED [None]
  - CONTUSION [None]
  - DIABETIC KETOACIDOSIS [None]
  - EXPOSURE TO TOXIC AGENT [None]
  - OEDEMA PERIPHERAL [None]
  - PAIN IN EXTREMITY [None]
